FAERS Safety Report 9474874 (Version 1)
Quarter: 2013Q3

REPORT INFORMATION
  Report Type: Spontaneous
  Country: ES (occurrence: ES)
  Receive Date: 20130823
  Receipt Date: 20130823
  Transmission Date: 20140515
  Serious: Yes (Other)
  Sender: FDA-Public Use
  Company Number: ES-BAXTER-2013BAX032438

PATIENT
  Age: 26 Year
  Sex: Female

DRUGS (9)
  1. GENOXAL 1 G INYECTABLE [Suspect]
     Indication: ACUTE MYELOID LEUKAEMIA
     Route: 065
  2. GENOXAL 1 G INYECTABLE [Suspect]
     Indication: APLASIA PURE RED CELL
  3. GENOXAL 1 G INYECTABLE [Suspect]
     Indication: AUTOIMMUNE HAEMOLYTIC ANAEMIA
  4. ANTITHYMOCYTE GLOBULIN [Suspect]
     Indication: ACUTE MYELOID LEUKAEMIA
     Route: 065
  5. CYCLOSPORINE [Suspect]
     Indication: GRAFT VERSUS HOST DISEASE
     Route: 065
  6. MYCOPHENOLATE MOFETIL [Suspect]
     Indication: GRAFT VERSUS HOST DISEASE
     Route: 065
  7. PREDNISONE [Suspect]
     Indication: APLASIA PURE RED CELL
     Route: 065
  8. PREDNISONE [Suspect]
     Indication: GRAFT VERSUS HOST DISEASE
  9. PREDNISONE [Suspect]
     Indication: AUTOIMMUNE HAEMOLYTIC ANAEMIA

REACTIONS (4)
  - Autoimmune haemolytic anaemia [Not Recovered/Not Resolved]
  - Aplasia pure red cell [Recovering/Resolving]
  - Cytomegalovirus infection [Unknown]
  - Acute graft versus host disease in skin [Recovered/Resolved]
